FAERS Safety Report 11024471 (Version 1)
Quarter: 2015Q2

REPORT INFORMATION
  Report Type: Spontaneous
  Country: SE (occurrence: SE)
  Receive Date: 20150414
  Receipt Date: 20150414
  Transmission Date: 20150821
  Serious: Yes (Hospitalization, Other)
  Sender: FDA-Public Use
  Company Number: SE-JNJFOC-20131201078

PATIENT

DRUGS (5)
  1. IBUPROFEN. [Suspect]
     Active Substance: IBUPROFEN
     Indication: PROCEDURAL PAIN
     Dosage: DAILY FOR 7 DAYS
     Route: 048
  2. ETORICOXIB [Suspect]
     Active Substance: ETORICOXIB
     Indication: PROCEDURAL PAIN
     Route: 048
  3. MORPHINE [Suspect]
     Active Substance: MORPHINE
     Indication: PROCEDURAL PAIN
     Dosage: MAXIMUM TOTAL DOSE IN 4 HOURS
     Route: 040
  4. ETORICOXIB [Suspect]
     Active Substance: ETORICOXIB
     Indication: PROCEDURAL PAIN
     Route: 048
  5. OXYCODONE [Suspect]
     Active Substance: OXYCODONE
     Indication: PROCEDURAL PAIN
     Dosage: 2, 5 MG TABLETS UP TO 4 TIMES A DAY (DAILY MAXIMUM OF 80 MG)
     Route: 065

REACTIONS (17)
  - Hypertension [Unknown]
  - Nausea [Unknown]
  - Post procedural haemorrhage [Unknown]
  - Oedema peripheral [Unknown]
  - Hyperhidrosis [Unknown]
  - Dyspepsia [Unknown]
  - Vomiting [Unknown]
  - Pruritus [Unknown]
  - Constipation [Unknown]
  - Drug ineffective [Unknown]
  - Anaemia postoperative [Unknown]
  - Oliguria [Unknown]
  - Headache [Unknown]
  - Wound infection [Unknown]
  - Dizziness [Unknown]
  - Pyrexia [Unknown]
  - Insomnia [Unknown]
